FAERS Safety Report 10473339 (Version 1)
Quarter: 2014Q3

REPORT INFORMATION
  Report Type: Spontaneous
  Country: US (occurrence: US)
  Receive Date: 20140924
  Receipt Date: 20140924
  Transmission Date: 20150326
  Serious: Yes (Other)
  Sender: FDA-Public Use
  Company Number: US-ACTAVIS-2014-20312

PATIENT
  Age: 59 Year
  Sex: Female

DRUGS (1)
  1. DILTIAZEM EXTENDED RELEASE (UNKNOWN MANUFACTURER) [Suspect]
     Active Substance: DILTIAZEM HYDROCHLORIDE
     Indication: PRODUCT USED FOR UNKNOWN INDICATION
     Dosage: 180 MG, DAILY
     Route: 065

REACTIONS (2)
  - Pruritus [Recovered/Resolved]
  - Skin hyperpigmentation [Recovering/Resolving]
